FAERS Safety Report 8369071-4 (Version None)
Quarter: 2012Q2

REPORT INFORMATION
  Report Type: 
  Country: None (occurrence: None)
  Receive Date: 20120518
  Receipt Date: 20120510
  Transmission Date: 20120825
  Serious: Yes (Hospitalization)
  Sender: FDA-Public Use
  Company Number: US-BAYER-2012-036865

PATIENT
  Age: 35 Year
  Sex: Female
  Weight: 117.91 kg

DRUGS (7)
  1. OXYCODONE HCL AND ACETAMINOPHEN [Concomitant]
     Dosage: UNK
     Dates: start: 20051012
  2. VITAMIN TAB [Concomitant]
  3. METROGEL [Concomitant]
     Dosage: 0.75 %, UNK
     Dates: start: 20050802
  4. MINOCYCLINE HCL [Concomitant]
     Dosage: 100 MG, UNK
     Dates: start: 20050821
  5. MOTRIN [Concomitant]
  6. YASMIN [Suspect]
     Indication: ACNE
     Dosage: UNK
     Dates: start: 20010101, end: 20040101
  7. YASMIN [Suspect]
     Indication: PREMENSTRUAL SYNDROME
     Dosage: UNK
     Dates: start: 20050101, end: 20051025

REACTIONS (6)
  - EMOTIONAL DISTRESS [None]
  - ANXIETY [None]
  - DEEP VEIN THROMBOSIS [None]
  - PULMONARY EMBOLISM [None]
  - PAIN [None]
  - GENERAL PHYSICAL HEALTH DETERIORATION [None]
